FAERS Safety Report 8932013 (Version 1)
Quarter: 2012Q4

REPORT INFORMATION
  Report Type: 
  Country: FR (occurrence: FR)
  Receive Date: 20121128
  Receipt Date: 20121128
  Transmission Date: 20130627
  Serious: Yes (Hospitalization)
  Sender: FDA-Public Use
  Company Number: FR-PFIZER INC-2012291899

PATIENT
  Age: 59 Year
  Sex: Male

DRUGS (2)
  1. DALACINE [Suspect]
     Indication: OSTEITIS
     Dosage: UNK
     Route: 048
     Dates: start: 20120927, end: 20121028
  2. BACTRIM [Suspect]
     Indication: OSTEITIS
     Dosage: UNK
     Route: 048
     Dates: start: 20120927, end: 20121028

REACTIONS (4)
  - Hepatitis [Recovering/Resolving]
  - Jaundice [Recovering/Resolving]
  - Eosinophilia [Recovering/Resolving]
  - Pyrexia [Recovered/Resolved]
